FAERS Safety Report 9747775 (Version 1)
Quarter: 2013Q4

REPORT INFORMATION
  Report Type: Spontaneous
  Country: US (occurrence: None)
  Receive Date: 20131211
  Receipt Date: 20131211
  Transmission Date: 20140711
  Serious: Yes (Other)
  Sender: FDA-Public Use
  Company Number: None

PATIENT
  Age: 39 Year
  Sex: Female
  Weight: 90.72 kg

DRUGS (1)
  1. MIRVASO [Suspect]
     Indication: ROSACEA
     Dosage: PEA SIZE, APPLIED TO A SURFACE, USUALLY THE SKIN

REACTIONS (4)
  - Rosacea [None]
  - Condition aggravated [None]
  - Drug dependence [None]
  - Burning sensation [None]
